FAERS Safety Report 8835884 (Version 1)
Quarter: 2012Q4

REPORT INFORMATION
  Report Type: 
  Country: US (occurrence: US)
  Receive Date: 20121011
  Receipt Date: 20121011
  Transmission Date: 20130627
  Serious: No
  Sender: FDA-Public Use
  Company Number: US-PFIZER INC-2012250325

PATIENT
  Sex: Female

DRUGS (2)
  1. XANAX [Suspect]
     Indication: MITRAL VALVE PROLAPSE
     Dosage: UNK
  2. ALPRAZOLAM [Suspect]
     Indication: MITRAL VALVE PROLAPSE
     Dosage: UNK

REACTIONS (2)
  - Feeling abnormal [Unknown]
  - Off label use [Unknown]
